FAERS Safety Report 10066896 (Version 3)
Quarter: 2014Q3

REPORT INFORMATION
  Report Type: Spontaneous
  Country: IT (occurrence: IT)
  Receive Date: 20140409
  Receipt Date: 20140729
  Transmission Date: 20150326
  Serious: Yes (Hospitalization, Other)
  Sender: FDA-Public Use
  Company Number: IT-ROCHE-1379851

PATIENT
  Age: 95 Year
  Sex: Male

DRUGS (6)
  1. NATRILIX [Concomitant]
     Active Substance: INDAPAMIDE
     Dosage: 1 POSOLOGIC UNIT
     Route: 065
  2. DILATREND [Concomitant]
     Active Substance: CARVEDILOL
     Route: 048
  3. CARDIOASPIRIN [Concomitant]
     Active Substance: ASPIRIN
     Route: 030
  4. CARDICOR [Concomitant]
     Active Substance: BISOPROLOL
     Route: 048
  5. ALTEPLASE [Suspect]
     Active Substance: ALTEPLASE
     Indication: ISCHAEMIC STROKE
     Dosage: POWDER AND SOLVENT FOR SOLUTION
     Route: 042
     Dates: start: 20140327, end: 20140327
  6. ALLOPURINOL. [Concomitant]
     Active Substance: ALLOPURINOL
     Route: 048

REACTIONS (4)
  - Epistaxis [Unknown]
  - Agitation [Unknown]
  - Hypertensive crisis [Unknown]
  - Upper airway obstruction [Unknown]

NARRATIVE: CASE EVENT DATE: 20140328
